FAERS Safety Report 5040248-9 (Version None)
Quarter: 2006Q2

REPORT INFORMATION
  Report Type: 
  Country: None (occurrence: None)
  Receive Date: 20060630
  Receipt Date: 20060516
  Transmission Date: 20061013
  Serious: Yes (Life-Threatening, Hospitalization, Other)
  Sender: FDA-Public Use
  Company Number: US-NOVOPROD-253361

PATIENT
  Age: 45 Year
  Sex: Female
  Weight: 127 kg

DRUGS (7)
  1. NOVOLIN N [Suspect]
     Indication: INSULIN-REQUIRING TYPE II DIABETES MELLITUS
     Dosage: 20 IU, QD
     Route: 058
     Dates: start: 20050301, end: 20050301
  2. SIMVASTATIN [Concomitant]
     Indication: BLOOD CHOLESTEROL INCREASED
  3. NOVOLIN R [Suspect]
     Indication: INSULIN-REQUIRING TYPE II DIABETES MELLITUS
     Dosage: UNKNOWN
     Route: 058
     Dates: start: 20050301, end: 20050301
  4. NOVOLIN 70/30 [Suspect]
     Indication: INSULIN-REQUIRING TYPE II DIABETES MELLITUS
     Dosage: UNKNOWN
     Route: 058
     Dates: start: 20050301, end: 20050301
  5. NOVOLOG [Suspect]
     Indication: INSULIN-REQUIRING TYPE II DIABETES MELLITUS
     Dosage: UNKNOWN
     Route: 058
     Dates: start: 20050301, end: 20050301
  6. GLYBURIDE [Concomitant]
     Indication: INSULIN-REQUIRING TYPE II DIABETES MELLITUS
     Route: 048
     Dates: end: 20050101
  7. METFORMIN [Concomitant]
     Indication: INSULIN-REQUIRING TYPE II DIABETES MELLITUS
     Route: 048
     Dates: end: 20050101

REACTIONS (2)
  - ATRIAL FIBRILLATION [None]
  - HYPERSENSITIVITY [None]
